FAERS Safety Report 9436858 (Version 1)
Quarter: 2013Q3

REPORT INFORMATION
  Report Type: Spontaneous
  Country: US (occurrence: US)
  Receive Date: 20130802
  Receipt Date: 20130802
  Transmission Date: 20140515
  Serious: No
  Sender: FDA-Public Use
  Company Number: US-PFIZER INC-2013223473

PATIENT
  Age: 28 Year
  Sex: Female
  Weight: 63.5 kg

DRUGS (1)
  1. DEPO-PROVERA [Suspect]
     Indication: CONTRACEPTION
     Dosage: UNK, EVERY 3 MONTHS
     Dates: start: 2005, end: 2012

REACTIONS (2)
  - Blood testosterone decreased [Unknown]
  - Vitamin C decreased [Unknown]
